FAERS Safety Report 24063161 (Version 2)
Quarter: 2024Q3

REPORT INFORMATION
  Report Type: Spontaneous
  Country: US (occurrence: US)
  Receive Date: 20240709
  Receipt Date: 20240722
  Transmission Date: 20241016
  Serious: No
  Sender: SANOFI AVENTIS
  Company Number: US-SA-SAC20240703000249

PATIENT
  Age: 71 Year
  Sex: Male
  Weight: 121.09 kg

DRUGS (1)
  1. LANTUS SOLOSTAR [Suspect]
     Active Substance: INSULIN GLARGINE
     Dosage: 23 IU, BID
     Route: 065

REACTIONS (4)
  - Ocular discomfort [Unknown]
  - Accidental exposure to product [Unknown]
  - Eye pain [Recovered/Resolved]
  - Inappropriate schedule of product administration [Unknown]
